FAERS Safety Report 7729204-7 (Version None)
Quarter: 2011Q3

REPORT INFORMATION
  Report Type: 
  Country: None (occurrence: None)
  Receive Date: 20110906
  Receipt Date: 20110830
  Transmission Date: 20111222
  Serious: No
  Sender: FDA-Public Use
  Company Number: US-PFIZER INC-2011054682

PATIENT
  Sex: Male

DRUGS (1)
  1. NIFEDIPINE [Suspect]
     Dosage: 90 MG, DAILY
     Route: 048
     Dates: start: 20050101

REACTIONS (2)
  - NAUSEA [None]
  - ERUCTATION [None]
